FAERS Safety Report 17799164 (Version 3)
Quarter: 2020Q3

REPORT INFORMATION
  Report Type: Spontaneous
  Country: BR (occurrence: BR)
  Receive Date: 20200518
  Receipt Date: 20200714
  Transmission Date: 20201102
  Serious: Yes (Other)
  Sender: FDA-Public Use
  Company Number: NVSC2020BR132799

PATIENT
  Age: 67 Year
  Sex: Female
  Weight: 82 kg

DRUGS (2)
  1. ESTRADOT [Suspect]
     Active Substance: ESTRADIOL
     Indication: HORMONE REPLACEMENT THERAPY
     Dosage: 25 UG (FOUR PATCHES) (15 YEARS AGO)
     Route: 062
  2. ESTRADOT [Suspect]
     Active Substance: ESTRADIOL
     Dosage: 1 DF, (100 MCG, ONE PATCH EVERY 3 DAYS) 5 YEARS AGO
     Route: 062

REACTIONS (8)
  - Drug dependence [Recovered/Resolved]
  - Asthenia [Unknown]
  - Loss of libido [Unknown]
  - Product adhesion issue [Unknown]
  - Insomnia [Unknown]
  - Irritability [Unknown]
  - Wrong technique in product usage process [Unknown]
  - Illness [Unknown]

NARRATIVE: CASE EVENT DATE: 201911
